FAERS Safety Report 19009438 (Version 1)
Quarter: 2021Q1

REPORT INFORMATION
  Report Type: Spontaneous
  Country: NL (occurrence: NL)
  Receive Date: 20210315
  Receipt Date: 20210315
  Transmission Date: 20210420
  Serious: Yes (Life-Threatening, Hospitalization)
  Sender: FDA-Public Use
  Company Number: NVSC2021NL059297

PATIENT
  Age: 50 Year
  Sex: Female
  Weight: 94 kg

DRUGS (4)
  1. DICLOFENACNATRIUM [Suspect]
     Active Substance: DICLOFENAC SODIUM
     Indication: NEPHROLITHIASIS
     Dosage: 1 DF
     Route: 065
     Dates: start: 20210222, end: 20210224
  2. MEDROXYPROGESTERON [Concomitant]
     Active Substance: MEDROXYPROGESTERONE ACETATE
     Indication: PRODUCT USED FOR UNKNOWN INDICATION
     Dosage: SUSPENSIE VOOR INJECTIE, 150 MG/ML (MILLIGRAM PER MILLILITER)
     Route: 065
  3. DICLOFENAC?KALIUM STADA [Suspect]
     Active Substance: DICLOFENAC POTASSIUM
     Indication: NEPHROLITHIASIS
     Dosage: 3 DF, PLUS PILLEN 3 STUKS
     Route: 065
     Dates: start: 20210222, end: 20210224
  4. SERTRALINE [Concomitant]
     Active Substance: SERTRALINE HYDROCHLORIDE
     Indication: PRODUCT USED FOR UNKNOWN INDICATION
     Dosage: 75 MG
     Route: 065

REACTIONS (1)
  - Renal failure [Recovering/Resolving]

NARRATIVE: CASE EVENT DATE: 20210224
